FAERS Safety Report 12646067 (Version 1)
Quarter: 2016Q3

REPORT INFORMATION
  Report Type: Spontaneous
  Country: IL (occurrence: IL)
  Receive Date: 20160811
  Receipt Date: 20160811
  Transmission Date: 20161109
  Serious: Yes (Hospitalization, Other)
  Sender: FDA-Public Use
  Company Number: IL-TAKEDA-2016TUS013811

PATIENT
  Age: 4 Day
  Sex: Male
  Weight: 3.4 kg

DRUGS (1)
  1. ENTYVIO [Suspect]
     Active Substance: VEDOLIZUMAB
     Indication: CROHN^S DISEASE
     Dosage: 300 MG, UNK
     Route: 064
     Dates: start: 20150301

REACTIONS (6)
  - Pyrexia [Unknown]
  - Eye infection [Unknown]
  - Pyrexia [Unknown]
  - Vomiting [Unknown]
  - Restlessness [Unknown]
  - Eye infection [Unknown]

NARRATIVE: CASE EVENT DATE: 20160711
